FAERS Safety Report 6265869-7 (Version None)
Quarter: 2009Q3

REPORT INFORMATION
  Report Type: 
  Country: None (occurrence: None)
  Receive Date: 20090708
  Receipt Date: 20090708
  Transmission Date: 20100115
  Serious: Yes (Other)
  Sender: FDA-Public Use
  Company Number: None

PATIENT
  Sex: Female
  Weight: 92.0802 kg

DRUGS (1)
  1. EFFEXOR XR [Suspect]
     Indication: DEPRESSION
     Dosage: 150 MG Q.D. PO
     Route: 048
     Dates: start: 20061001, end: 20090706

REACTIONS (8)
  - BEDRIDDEN [None]
  - DRUG WITHDRAWAL SYNDROME [None]
  - FAECAL INCONTINENCE [None]
  - HYPOPHAGIA [None]
  - NO THERAPEUTIC RESPONSE [None]
  - ORTHOSTATIC HYPOTENSION [None]
  - URINARY INCONTINENCE [None]
  - VOMITING [None]
